FAERS Safety Report 5649161-7 (Version None)
Quarter: 2008Q1

REPORT INFORMATION
  Report Type: 
  Country: None (occurrence: None)
  Receive Date: 20080304
  Receipt Date: 20080228
  Transmission Date: 20080703
  Serious: Yes (Death, Other)
  Sender: FDA-Public Use
  Company Number: GB-BRISTOL-MYERS SQUIBB COMPANY-14097455

PATIENT
  Age: 69 Year
  Sex: Male

DRUGS (4)
  1. STAVUDINE [Suspect]
     Indication: ANTIRETROVIRAL THERAPY
  2. INDINIVIR SULFATE [Suspect]
     Indication: ANTIRETROVIRAL THERAPY
     Route: 048
  3. NEVIRAPINE [Suspect]
     Indication: ANTIRETROVIRAL THERAPY
  4. RITONAVIR [Suspect]
     Indication: ANTIRETROVIRAL THERAPY

REACTIONS (2)
  - MALIGNANT MELANOMA [None]
  - NEOPLASM MALIGNANT [None]
